FAERS Safety Report 13067878 (Version 1)
Quarter: 2016Q4

REPORT INFORMATION
  Report Type: Spontaneous
  Country: US (occurrence: US)
  Receive Date: 20161227
  Receipt Date: 20161227
  Transmission Date: 20170207
  Serious: No
  Sender: FDA-Public Use
  Company Number: None

PATIENT
  Age: 63 Year
  Sex: Male

DRUGS (1)
  1. HUMIRA [Suspect]
     Active Substance: ADALIMUMAB
     Indication: RHEUMATOID ARTHRITIS
     Dosage: 40MG ONCE PER WEEK
     Route: 058
     Dates: start: 20160425, end: 20161128

REACTIONS (2)
  - Diverticulitis [None]
  - Weight decreased [None]

NARRATIVE: CASE EVENT DATE: 20161128
